FAERS Safety Report 6273099-8 (Version None)
Quarter: 2009Q3

REPORT INFORMATION
  Report Type: 
  Country: None (occurrence: None)
  Receive Date: 20090715
  Receipt Date: 20090715
  Transmission Date: 20100115
  Serious: Yes (Hospitalization)
  Sender: FDA-Public Use
  Company Number: None

PATIENT
  Sex: Female
  Weight: 53.2 kg

DRUGS (2)
  1. TAXOTERE [Suspect]
     Indication: NON-SMALL CELL LUNG CANCER
     Dosage: 80.5 MG EVERY 2 WEEKS IV INFUSION
     Route: 042
     Dates: start: 20090511, end: 20090624
  2. NAVELBINE [Suspect]
     Indication: NON-SMALL CELL LUNG CANCER
     Dosage: 56.35 MG EVERY 2 WEEKS IV INFUSION
     Route: 042
     Dates: start: 20090511, end: 20090624

REACTIONS (6)
  - ASTHENIA [None]
  - DECREASED APPETITE [None]
  - INSOMNIA [None]
  - METASTASES TO CENTRAL NERVOUS SYSTEM [None]
  - STOMATITIS [None]
  - WEIGHT DECREASED [None]
